FAERS Safety Report 9924073 (Version 1)
Quarter: 2014Q1

REPORT INFORMATION
  Report Type: Report from Study
  Country: US (occurrence: US)
  Receive Date: 20140225
  Receipt Date: 20140225
  Transmission Date: 20141002
  Serious: Yes (Other)
  Sender: FDA-Public Use
  Company Number: US-ROCHE-1338314

PATIENT
  Age: 63 Year
  Sex: Male

DRUGS (11)
  1. LUCENTIS [Suspect]
     Indication: VENOUS OCCLUSION
     Route: 050
  2. LUCENTIS [Suspect]
     Indication: RETINAL OEDEMA
  3. LUCENTIS [Suspect]
     Indication: RETINAL VEIN OCCLUSION
  4. AVASTIN [Suspect]
     Indication: PRODUCT USED FOR UNKNOWN INDICATION
     Route: 047
  5. LISINOPRIL [Concomitant]
  6. WARFARIN [Concomitant]
  7. SYSTANE [Concomitant]
     Route: 065
  8. HCTZ [Concomitant]
  9. SPIRONOLACTONE [Concomitant]
     Route: 065
  10. AMIODARONE [Concomitant]
     Route: 065
  11. PACERONE [Concomitant]

REACTIONS (17)
  - Eye irritation [Unknown]
  - Pneumonia [Unknown]
  - Cardiomegaly [Unknown]
  - Atrial fibrillation [Unknown]
  - Asthma [Unknown]
  - Vitreous floaters [Unknown]
  - Eye pain [Unknown]
  - Hypertension [Unknown]
  - Dry eye [Unknown]
  - Eye swelling [Unknown]
  - Visual acuity reduced [Unknown]
  - Headache [Unknown]
  - Heart rate irregular [Unknown]
  - Vitreous detachment [Unknown]
  - Dyspnoea [Unknown]
  - Vision blurred [Unknown]
  - Off label use [Unknown]
